FAERS Safety Report 9157105 (Version 1)
Quarter: 2013Q1

REPORT INFORMATION
  Report Type: Spontaneous
  Country: JP (occurrence: None)
  Receive Date: 20130308
  Receipt Date: 20130308
  Transmission Date: 20140127
  Serious: Yes (Death, Hospitalization)
  Sender: FDA-Public Use
  Company Number: SYM-2013-01412

PATIENT
  Age: 50 Year
  Sex: Female
  Weight: 66 kg

DRUGS (8)
  1. FLUOROURACIL [Suspect]
     Indication: COLON CANCER
     Route: 040
     Dates: start: 20080519, end: 20080519
  2. OXALIPLATIN [Suspect]
     Indication: COLON CANCER
     Route: 041
     Dates: start: 20080519, end: 20080519
  3. CALCIUM LEVOFOLINATE (CALCIUM LEVOFOLINATE) [Concomitant]
  4. ANTIBIOTICS (ANTIBIOTICS) [Concomitant]
  5. AVASTIN (ANTIBIOTICS) [Concomitant]
  6. NASEA (RAMOSETRON HYDROCHLORIDE) (RAMOSETRON HYDROCHLORIDE) [Concomitant]
  7. ZANTAC (RANITIDINE HYDROCHLORIDE) (RANITIDINE HYDROCHLORIDE) [Concomitant]
  8. DEXAMETHASONE SODIUM PHOSPHATE (DEXAMETHASONE SODIUM PHOSPHATE) [Concomitant]

REACTIONS (4)
  - Anaphylactoid reaction [None]
  - Loss of consciousness [None]
  - Colon cancer metastatic [None]
  - Condition aggravated [None]
